FAERS Safety Report 5071744-6 (Version None)
Quarter: 2006Q3

REPORT INFORMATION
  Report Type: 
  Country: None (occurrence: None)
  Receive Date: 20060804
  Receipt Date: 19980608
  Transmission Date: 20061208
  Serious: Yes (Death, Hospitalization, Other)
  Sender: FDA-Public Use
  Company Number: B039205

PATIENT
  Age: 43 Year
  Sex: Male

DRUGS (17)
  1. ZERIT [Suspect]
     Indication: ACQUIRED IMMUNODEFICIENCY SYNDROME
     Dosage: DOSED FROM: 25-SEP-97 TO 27-FEB-98/27-FEB-98 TO 24-APR-98/02-JUN-00 TO 31 MAR-06
     Route: 048
     Dates: start: 19980227, end: 20060331
  2. VIDEX EC [Suspect]
     Indication: HIV INFECTION
     Route: 048
     Dates: start: 20010330, end: 20060331
  3. LAMIVUDINE [Suspect]
     Indication: ACQUIRED IMMUNODEFICIENCY SYNDROME
     Route: 048
     Dates: start: 19970925, end: 19980227
  4. VIRACEPT [Suspect]
     Indication: ACQUIRED IMMUNODEFICIENCY SYNDROME
     Dosage: DOSE VALUE: 2.2-1.5 DOSED FROM: 25-SEP-1997 TO 02OCT-1997 AND 17-OCT-1997 TO 28-OCT-1997
     Route: 048
     Dates: start: 19970925, end: 19971028
  5. NORVIR [Suspect]
     Indication: HIV INFECTION
     Route: 048
     Dates: start: 20000602, end: 20060331
  6. FORTOVASE [Suspect]
     Indication: HIV INFECTION
     Route: 048
     Dates: start: 20000602, end: 20060331
  7. ZIDOVUDINE [Concomitant]
     Indication: ACQUIRED IMMUNODEFICIENCY SYNDROME
     Route: 048
     Dates: start: 19950831, end: 19970925
  8. DIFLUCAN [Concomitant]
     Route: 048
     Dates: start: 19951005, end: 19970117
  9. ZALCITABINE [Concomitant]
     Indication: ACQUIRED IMMUNODEFICIENCY SYNDROME
     Route: 048
     Dates: start: 19970422, end: 19970925
  10. CLARITHROMYCIN [Concomitant]
     Route: 048
     Dates: start: 19971001, end: 19980521
  11. ETHAMBUTOL HYDROCHLORIDE [Concomitant]
     Route: 048
     Dates: start: 19971001, end: 19980521
  12. AMIKACIN [Concomitant]
     Route: 041
     Dates: start: 19971002, end: 19971229
  13. ACYCLOVIR [Concomitant]
     Route: 050
     Dates: start: 19971002, end: 19971007
  14. PENTAMIDINE ISETHIONATE [Concomitant]
     Dosage: DOSE VALUE: 200-260
     Route: 050
  15. PENTAMIDINE ISETHIONATE [Concomitant]
     Route: 055
  16. PENTAMIDINE ISETHIONATE [Concomitant]
  17. CIPROFLOXACIN HCL [Concomitant]
     Route: 048
     Dates: start: 19971001, end: 19980521

REACTIONS (4)
  - ANAL CANCER [None]
  - EOSINOPHIL COUNT INCREASED [None]
  - HERPES ZOSTER [None]
  - PYREXIA [None]
